FAERS Safety Report 10328222 (Version 2)
Quarter: 2015Q1

REPORT INFORMATION
  Report Type: Spontaneous
  Country: CA (occurrence: CA)
  Receive Date: 20140721
  Receipt Date: 20150121
  Transmission Date: 20150720
  Serious: Yes (Hospitalization)
  Sender: FDA-Public Use
  Company Number: CA-JNJFOC-20140710462

PATIENT
  Age: 83 Year
  Sex: Female
  Weight: 56.7 kg

DRUGS (7)
  1. EZETROL [Concomitant]
     Active Substance: EZETIMIBE
     Route: 048
  2. RATIO-METFORMIN [Concomitant]
     Dosage: 1 1/2 TABLETS
     Route: 048
  3. SIMPONI [Suspect]
     Active Substance: GOLIMUMAB
     Indication: RHEUMATOID ARTHRITIS
     Route: 058
     Dates: start: 201009
  4. LEFLUNOMIDE. [Concomitant]
     Active Substance: LEFLUNOMIDE
     Route: 048
  5. APO-RISEDRONATE [Concomitant]
     Route: 048
  6. AMLODIPINE [Concomitant]
     Active Substance: AMLODIPINE BESYLATE
     Route: 048
  7. LESCOL (FLUVASTATIN SODIUM) [Concomitant]
     Route: 048

REACTIONS (2)
  - Skin abrasion [Unknown]
  - Cellulitis [Recovered/Resolved]

NARRATIVE: CASE EVENT DATE: 20140704
